FAERS Safety Report 10732504 (Version 1)
Quarter: 2015Q1

REPORT INFORMATION
  Report Type: Spontaneous
  Country: FR (occurrence: None)
  Receive Date: 20150120
  Receipt Date: 20150120
  Transmission Date: 20150721
  Serious: Yes (Hospitalization)
  Sender: FDA-Public Use
  Company Number: AXC-2015-000007

PATIENT
  Age: 71 Year
  Sex: Female

DRUGS (6)
  1. INEGY (EZETIMIBE, SIMVASTATIN) [Concomitant]
  2. TRANSIPEG (MACROGOL) [Concomitant]
  3. PYLERA [Suspect]
     Active Substance: BISMUTH SUBCITRATE POTASSIUM\METRONIDAZOLE\TETRACYCLINE HYDROCHLORIDE
     Indication: HELICOBACTER INFECTION
     Route: 048
     Dates: start: 20141126, end: 20141204
  4. CO APROVEL (HYDROCHLOROTHIAZIDE, IRBESARTAN) UNKNOWN [Concomitant]
  5. OMEPRAZOLE (OMEPRAZOLE) UNKNOWN [Concomitant]
     Active Substance: OMEPRAZOLE
  6. METFORMIN (METFORMIN) UNKNOWN, UNKNOWN [Concomitant]
     Active Substance: METFORMIN HYDROCHLORIDE

REACTIONS (14)
  - Hypersensitivity [None]
  - Toxic skin eruption [None]
  - Pyrexia [None]
  - Hyponatraemia [None]
  - Hypokalaemia [None]
  - Periorbital oedema [None]
  - Abdominal pain upper [None]
  - Hypogammaglobulinaemia [None]
  - Rash maculo-papular [None]
  - Pruritus [None]
  - Dysphonia [None]
  - Cardiac murmur functional [None]
  - Nausea [None]
  - Eosinophilia [None]

NARRATIVE: CASE EVENT DATE: 20141204
